FAERS Safety Report 10495081 (Version 1)
Quarter: 2014Q4

REPORT INFORMATION
  Report Type: Spontaneous
  Country: US (occurrence: US)
  Receive Date: 20141003
  Receipt Date: 20141003
  Transmission Date: 20150528
  Serious: Yes (Life-Threatening, Hospitalization, Other)
  Sender: FDA-Public Use
  Company Number: US-MYLANLABS-2014S1016347

PATIENT
  Age: 64 Year
  Sex: Female

DRUGS (3)
  1. RALTEGRAVIR [Concomitant]
     Active Substance: RALTEGRAVIR
     Dosage: UNK
  2. ABACAVIR [Suspect]
     Active Substance: ABACAVIR
     Indication: HIV INFECTION
     Dosage: UNK UNK,BID
     Route: 048
     Dates: start: 20140507, end: 20140618
  3. EPIVIR [Suspect]
     Active Substance: LAMIVUDINE

REACTIONS (5)
  - Hypersensitivity [Unknown]
  - Renal failure [Unknown]
  - Chills [Unknown]
  - Rash maculo-papular [Unknown]
  - Pyrexia [Unknown]

NARRATIVE: CASE EVENT DATE: 2014
